FAERS Safety Report 6679233-X (Version None)
Quarter: 2010Q2

REPORT INFORMATION
  Report Type: 
  Country: None (occurrence: None)
  Receive Date: 20100413
  Receipt Date: 20100329
  Transmission Date: 20101027
  Serious: Yes (Other)
  Sender: FDA-Public Use
  Company Number: US-BAYER-201019033NA

PATIENT
  Age: 34 Year
  Sex: Male

DRUGS (15)
  1. MAGNEVIST [Suspect]
     Indication: NUCLEAR MAGNETIC RESONANCE IMAGING BRAIN
     Route: 042
     Dates: start: 20060705, end: 20060705
  2. MAGNEVIST [Suspect]
     Route: 042
     Dates: start: 20080307, end: 20080307
  3. MAGNEVIST [Suspect]
     Dates: start: 20030919, end: 20030919
  4. UNKNOWN GADOLINIUM [Suspect]
     Indication: FISTULOGRAM
     Dates: start: 20070815, end: 20070815
  5. COUMADIN [Concomitant]
  6. LISINOPRIL [Concomitant]
  7. DIATX [Concomitant]
  8. PHOSLO [Concomitant]
  9. FERRLECIT [Concomitant]
  10. EPOGEN [Concomitant]
  11. ZEMPLAR [Concomitant]
  12. RENAX [Concomitant]
  13. RENAGEL [Concomitant]
  14. SENSIPAR [Concomitant]
  15. SULAR [Concomitant]

REACTIONS (24)
  - ARTHRALGIA [None]
  - ASTHENIA [None]
  - BACK PAIN [None]
  - BALANCE DISORDER [None]
  - DRY SKIN [None]
  - EXTREMITY CONTRACTURE [None]
  - GAIT DISTURBANCE [None]
  - HYPOAESTHESIA [None]
  - HYPOKINESIA [None]
  - JOINT CONTRACTURE [None]
  - LETHARGY [None]
  - MUSCLE SPASTICITY [None]
  - MUSCULAR WEAKNESS [None]
  - MUSCULOSKELETAL STIFFNESS [None]
  - MYALGIA [None]
  - NEPHROGENIC SYSTEMIC FIBROSIS [None]
  - OEDEMA PERIPHERAL [None]
  - PAIN IN EXTREMITY [None]
  - PARAESTHESIA [None]
  - PRURITUS [None]
  - SKIN HYPERTROPHY [None]
  - SKIN REACTION [None]
  - SKIN TIGHTNESS [None]
  - TREMOR [None]
